FAERS Safety Report 13602683 (Version 3)
Quarter: 2017Q3

REPORT INFORMATION
  Report Type: Report from Study
  Country: CA (occurrence: CA)
  Receive Date: 20170601
  Receipt Date: 20170714
  Transmission Date: 20171127
  Serious: Yes (Other)
  Sender: FDA-Public Use
  Company Number: CA-PFIZER INC-2017153985

PATIENT
  Age: 59 Year
  Sex: Male

DRUGS (6)
  1. ENTYVIO [Suspect]
     Active Substance: VEDOLIZUMAB
     Dosage: UNK
  2. TACROLIMUS. [Concomitant]
     Active Substance: TACROLIMUS
     Dosage: 4 MG, QD
     Dates: start: 2010
  3. ENTYVIO [Suspect]
     Active Substance: VEDOLIZUMAB
     Indication: CROHN^S DISEASE
     Dosage: 300 MG, CYCLIC
     Route: 042
     Dates: start: 20161221, end: 20170401
  4. MYCOPHENOLATE [Concomitant]
     Active Substance: MYCOPHENOLIC ACID
     Dosage: 1500 MG, QD
     Dates: start: 2010
  5. PREDNISONE. [Concomitant]
     Active Substance: PREDNISONE
     Dosage: UNK
  6. TECTA [Suspect]
     Active Substance: PANTOPRAZOLE MAGNESIUM
     Dosage: 40 MG, UNK
     Route: 065
     Dates: start: 20151231

REACTIONS (3)
  - Back pain [Not Recovered/Not Resolved]
  - Lung neoplasm malignant [Not Recovered/Not Resolved]
  - Metastases to bone [Not Recovered/Not Resolved]
